FAERS Safety Report 4324085-6 (Version None)
Quarter: 2004Q1

REPORT INFORMATION
  Report Type: 
  Country: None (occurrence: None)
  Receive Date: 20040326
  Receipt Date: 20031217
  Transmission Date: 20041129
  Serious: No
  Sender: FDA-Public Use
  Company Number: US-GLAXOSMITHKLINE-A0443488A

PATIENT
  Age: 76 Year
  Sex: Male

DRUGS (7)
  1. ADVAIR DISKUS 100/50 [Suspect]
     Indication: ASTHMA
     Dosage: 1PUFF TWICE PER DAY
     Route: 055
     Dates: start: 20031001
  2. COMBIVENT [Concomitant]
  3. THEO-DUR [Concomitant]
  4. AVAPRO [Concomitant]
  5. ASTELIN [Concomitant]
  6. NASALCROM [Concomitant]
  7. NASACORT [Concomitant]

REACTIONS (1)
  - DYSPNOEA [None]
